FAERS Safety Report 6844050-4 (Version None)
Quarter: 2010Q3

REPORT INFORMATION
  Report Type: 
  Country: None (occurrence: None)
  Receive Date: 20100715
  Receipt Date: 20100706
  Transmission Date: 20110219
  Serious: Yes (Hospitalization)
  Sender: FDA-Public Use
  Company Number: CH-SANOFI-AVENTIS-2010SA039950

PATIENT
  Age: 48 Year
  Sex: Male

DRUGS (6)
  1. ARAVA [Suspect]
     Indication: PSORIATIC ARTHROPATHY
     Route: 048
     Dates: start: 20060802, end: 20090415
  2. ETANERCEPT [Suspect]
     Indication: PSORIATIC ARTHROPATHY
     Route: 058
     Dates: start: 20090101, end: 20090401
  3. ETANERCEPT [Suspect]
     Route: 058
     Dates: start: 20090401, end: 20090601
  4. ETANERCEPT [Suspect]
     Dosage: ONCE OR TWICE DAILY
     Route: 058
     Dates: start: 20090601, end: 20090927
  5. ATACAND HCT [Concomitant]
     Indication: ESSENTIAL HYPERTENSION
     Route: 048
  6. IBUPROFEN [Concomitant]
     Dates: start: 20060101

REACTIONS (7)
  - COLITIS [None]
  - HEADACHE [None]
  - HEPATIC ENZYME ABNORMAL [None]
  - MENINGITIS ASEPTIC [None]
  - NAUSEA [None]
  - UPPER RESPIRATORY TRACT INFECTION [None]
  - VOMITING [None]
